FAERS Safety Report 21240061 (Version 1)
Quarter: 2022Q3

REPORT INFORMATION
  Report Type: Spontaneous
  Country: None (occurrence: GB)
  Receive Date: 20220822
  Receipt Date: 20220822
  Transmission Date: 20221027
  Serious: Yes (Death, Hospitalization, Other)
  Sender: FDA-Public Use
  Company Number: GB-Breckenridge Pharmaceutical, Inc.-2132113

PATIENT
  Sex: Female

DRUGS (10)
  1. OMEPRAZOLE [Suspect]
     Active Substance: OMEPRAZOLE
     Route: 048
  2. DOXAZOSIN [Suspect]
     Active Substance: DOXAZOSIN MESYLATE
  3. ALENDRONATE SODIUM [Concomitant]
     Active Substance: ALENDRONATE SODIUM
     Route: 048
  4. CHOLECALCIFEROL [Concomitant]
     Active Substance: CHOLECALCIFEROL
     Route: 048
  5. SILVER SULFADIAZINE [Concomitant]
     Active Substance: SILVER SULFADIAZINE
  6. COCODAMOL [Concomitant]
     Active Substance: ACETAMINOPHEN\CODEINE PHOSPHATE
  7. BISOPROLOL. [Concomitant]
     Active Substance: BISOPROLOL FUMARATE
  8. FOLIC ACID [Concomitant]
     Active Substance: FOLIC ACID
  9. LEVOTHYROXINE SODIUM [Concomitant]
     Active Substance: LEVOTHYROXINE SODIUM
  10. QUININE SULFATE [Concomitant]
     Active Substance: QUININE SULFATE

REACTIONS (7)
  - Oedema [Unknown]
  - Hepatic cirrhosis [Fatal]
  - Hypoalbuminaemia [Fatal]
  - Malnutrition [Unknown]
  - Fluid retention [Fatal]
  - Ascites [Fatal]
  - Chronic kidney disease [Fatal]
